FAERS Safety Report 6723496-9 (Version None)
Quarter: 2010Q2

REPORT INFORMATION
  Report Type: 
  Country: None (occurrence: None)
  Receive Date: 20100513
  Receipt Date: 20100506
  Transmission Date: 20101027
  Serious: Yes (Other)
  Sender: FDA-Public Use
  Company Number: US-JNJFOC-20100502713

PATIENT
  Sex: Male
  Weight: 86.18 kg

DRUGS (8)
  1. DURAGESIC-100 [Suspect]
     Indication: NEUROPATHY PERIPHERAL
     Route: 062
  2. DURAGESIC-100 [Suspect]
     Route: 062
  3. DURAGESIC-100 [Suspect]
     Dosage: 100+50MCG
     Route: 062
  4. DURAGESIC-100 [Suspect]
     Dosage: 100+25MCG
     Route: 062
  5. DURAGESIC-100 [Suspect]
     Dosage: 100+25MCG
     Route: 062
  6. DURAGESIC-100 [Suspect]
     Dosage: 100+50MCG
     Route: 062
  7. NEURONTIN [Concomitant]
     Indication: NEURALGIA
     Route: 048
  8. ATRIPLA [Concomitant]
     Indication: HIV INFECTION
     Route: 048

REACTIONS (5)
  - BREAKTHROUGH PAIN [None]
  - HYPERHIDROSIS [None]
  - HYPERTENSION [None]
  - WEIGHT INCREASED [None]
  - WRONG TECHNIQUE IN DRUG USAGE PROCESS [None]
